FAERS Safety Report 4285816-7 (Version None)
Quarter: 2004Q1

REPORT INFORMATION
  Report Type: 
  Country: None (occurrence: None)
  Receive Date: 20040202
  Receipt Date: 20040129
  Transmission Date: 20041129
  Serious: Yes (Life-Threatening, Hospitalization)
  Sender: FDA-Public Use
  Company Number: HQWYE573127JAN04

PATIENT
  Age: 53 Year
  Sex: Male
  Weight: 98.2 kg

DRUGS (3)
  1. MYLOTARG [Suspect]
     Indication: MYELODYSPLASTIC SYNDROME
     Dosage: 2 MG/M2, INTRAVENOUS
     Route: 042
     Dates: start: 20030515, end: 20030515
  2. MELPHALAN (MELPHALAN,) [Suspect]
  3. G-CSF (GRANULOCYTE COLONY STIMULATING FACTOR) [Concomitant]

REACTIONS (2)
  - GRAFT LOSS [None]
  - PANCYTOPENIA [None]
